APPROVED DRUG PRODUCT: ATROPINE SULFATE
Active Ingredient: ATROPINE SULFATE
Strength: 0.25MG/5ML (0.05MG/ML)
Dosage Form/Route: SOLUTION;INTRAVENOUS
Application: N021146 | Product #002 | TE Code: AP
Applicant: HOSPIRA INC
Approved: Jul 9, 2001 | RLD: Yes | RS: Yes | Type: RX